FAERS Safety Report 7772459-3 (Version None)
Quarter: 2011Q3

REPORT INFORMATION
  Report Type: 
  Country: None (occurrence: None)
  Receive Date: 20110922
  Receipt Date: 20110915
  Transmission Date: 20111222
  Serious: Yes (Hospitalization)
  Sender: FDA-Public Use
  Company Number: PHHO2011GB15065

PATIENT
  Sex: Male
  Weight: 78 kg

DRUGS (8)
  1. LANTUS [Concomitant]
     Indication: DIABETES MELLITUS
     Dosage: UNK
     Dates: start: 20090123
  2. BISOPROLOL FUMARATE [Concomitant]
     Indication: HYPERTENSION
     Dosage: UNK
     Dates: start: 20100728
  3. AMLODIPINE [Concomitant]
     Indication: HYPERTENSION
     Dosage: UNK
     Dates: start: 20010125
  4. RANIBIZUMAB [Suspect]
     Indication: DIABETIC RETINAL OEDEMA
     Dosage: UNK
     Dates: start: 20110527
  5. FUROSEMIDE [Suspect]
     Dosage: 40 MG, QD
     Dates: start: 20110822, end: 20110905
  6. METFORMIN [Concomitant]
     Indication: DIABETES MELLITUS
     Dosage: UNK
     Dates: start: 20010103
  7. RANIBIZUMAB [Suspect]
     Dosage: UNK
     Dates: start: 20110805, end: 20110902
  8. SIMVASTATIN [Concomitant]
     Indication: HYPERLIPIDAEMIA
     Dosage: UNK
     Dates: start: 20061025

REACTIONS (3)
  - RENAL IMPAIRMENT [None]
  - CARDIAC FAILURE [None]
  - GAIT DISTURBANCE [None]
